FAERS Safety Report 4421805-7 (Version None)
Quarter: 2004Q3

REPORT INFORMATION
  Report Type: 
  Country: None (occurrence: None)
  Receive Date: 20040809
  Receipt Date: 20040809
  Transmission Date: 20050211
  Serious: Yes (Disabling)
  Sender: FDA-Public Use
  Company Number: None

PATIENT
  Age: 27 Year
  Sex: Female
  Weight: 75.7507 kg

DRUGS (2)
  1. DEPO-MEDROL [Suspect]
     Indication: INTERVERTEBRAL DISC DISORDER
     Dosage: 80 MG ONCE EPIDURAL
     Route: 008
  2. DEPO-MEDROL [Suspect]
     Indication: PAIN
     Dosage: 80 MG ONCE EPIDURAL
     Route: 008

REACTIONS (3)
  - ILL-DEFINED DISORDER [None]
  - OFF LABEL USE [None]
  - PAIN [None]
